FAERS Safety Report 10905257 (Version 1)
Quarter: 2015Q1

REPORT INFORMATION
  Report Type: Spontaneous
  Country: US (occurrence: None)
  Receive Date: 20150309
  Receipt Date: 20150309
  Transmission Date: 20150721
  Serious: No
  Sender: FDA-Public Use
  Company Number: None

PATIENT
  Age: 48 Year
  Sex: Female
  Weight: 57.15 kg

DRUGS (4)
  1. ADDERALL [Concomitant]
     Active Substance: AMPHETAMINE ASPARTATE\AMPHETAMINE SULFATE\DEXTROAMPHETAMINE SACCHARATE\DEXTROAMPHETAMINE SULFATE
  2. PRISTIQ EXTENDED RELEASE [Suspect]
     Active Substance: DESVENLAFAXINE SUCCINATE
     Dosage: 1 PILL, ONCE DAILY, TAKEN BY MOUTH
     Route: 048
     Dates: start: 20141201, end: 20150228
  3. ZENZEDI [Concomitant]
     Active Substance: DEXTROAMPHETAMINE SULFATE
  4. PRISTIQ EXTENDED RELEASE [Suspect]
     Active Substance: DESVENLAFAXINE SUCCINATE
     Indication: DEPRESSION
     Dosage: 1 PILL, ONCE DAILY, TAKEN BY MOUTH
     Route: 048
     Dates: start: 20141201, end: 20150228

REACTIONS (17)
  - Respiratory disorder [None]
  - Tongue biting [None]
  - Impaired work ability [None]
  - Dry mouth [None]
  - Paraesthesia oral [None]
  - Balance disorder [None]
  - Vision blurred [None]
  - Palpitations [None]
  - Mood altered [None]
  - Mastication disorder [None]
  - Disturbance in attention [None]
  - Drug withdrawal syndrome [None]
  - Anger [None]
  - Irritability [None]
  - Paraesthesia [None]
  - Feeling abnormal [None]
  - Tinnitus [None]

NARRATIVE: CASE EVENT DATE: 20150209
